FAERS Safety Report 22210654 (Version 3)
Quarter: 2023Q2

REPORT INFORMATION
  Report Type: Spontaneous
  Country: None (occurrence: GR)
  Receive Date: 20230414
  Receipt Date: 20230509
  Transmission Date: 20230721
  Serious: Yes (Hospitalization)
  Sender: FDA-Public Use
  Company Number: GR-Therakind Limited-2140330

PATIENT
  Age: 60 Year
  Sex: Male

DRUGS (8)
  1. METHOTREXATE [Suspect]
     Active Substance: METHOTREXATE
     Indication: Rheumatoid arthritis
  2. INFLIXIMAB [Suspect]
     Active Substance: INFLIXIMAB
  3. TOCILIZUMAB [Suspect]
     Active Substance: TOCILIZUMAB
  4. ABATACEPT [Concomitant]
     Active Substance: ABATACEPT
  5. ADALIMUMAB [Concomitant]
     Active Substance: ADALIMUMAB
  6. RABEPRAZOLE SODIUM [Suspect]
     Active Substance: RABEPRAZOLE SODIUM
  7. CITALOPRAM [Suspect]
     Active Substance: CITALOPRAM HYDROBROMIDE
  8. PREDNISOLONE [Concomitant]
     Active Substance: PREDNISOLONE

REACTIONS (3)
  - Treatment noncompliance [Unknown]
  - Infection [Recovering/Resolving]
  - Therapeutic product effect incomplete [Unknown]
